FAERS Safety Report 20803380 (Version 1)
Quarter: 2022Q2

REPORT INFORMATION
  Report Type: Spontaneous
  Country: US (occurrence: US)
  Receive Date: 20220509
  Receipt Date: 20220509
  Transmission Date: 20220721
  Serious: No
  Sender: FDA-Public Use
  Company Number: US-PFIZER INC-202101698163

PATIENT
  Age: 86 Year
  Sex: Female
  Weight: 54.43 kg

DRUGS (1)
  1. SPIRONOLACTONE [Suspect]
     Active Substance: SPIRONOLACTONE
     Indication: Aortic valve stenosis
     Dosage: 100 MG, 1X/DAY

REACTIONS (4)
  - Palpitations [Unknown]
  - Heart rate increased [Unknown]
  - Pain [Unknown]
  - Off label use [Unknown]
